FAERS Safety Report 5821621-5 (Version None)
Quarter: 2008Q3

REPORT INFORMATION
  Report Type: 
  Country: None (occurrence: None)
  Receive Date: 20080714
  Receipt Date: 20070517
  Transmission Date: 20090109
  Serious: Yes (Disabling)
  Sender: FDA-Public Use
  Company Number: 498005

PATIENT
  Age: 76 Year
  Sex: Female
  Weight: 86.2 kg

DRUGS (6)
  1. BONIVA [Suspect]
     Indication: OSTEOPENIA
     Dosage: 150 MG 1 PER MONTH ORAL
     Route: 048
     Dates: start: 20070301, end: 20070401
  2. NEXIUM [Concomitant]
  3. GLUCOSAMINE (GLUCOSAMINE) [Concomitant]
  4. CHONDROITIN (CHONDROITIN SULFATE) [Concomitant]
  5. ASPIRIN [Concomitant]
  6. VITAMIN NOS (VITAMIN NOS) [Concomitant]

REACTIONS (2)
  - ARTHRALGIA [None]
  - PAIN IN EXTREMITY [None]
